FAERS Safety Report 15103726 (Version 1)
Quarter: 2018Q3

REPORT INFORMATION
  Report Type: Spontaneous
  Country: US (occurrence: US)
  Receive Date: 20180703
  Receipt Date: 20180703
  Transmission Date: 20181010
  Serious: Yes (Other)
  Sender: FDA-Public Use
  Company Number: US-HORIZON-PEN-0610-2018

PATIENT
  Age: 59 Year
  Sex: Female
  Weight: 72.6 kg

DRUGS (11)
  1. OXYCODONE/ACETAMINOPHEN [Suspect]
     Active Substance: ACETAMINOPHEN\OXYCODONE HYDROCHLORIDE
     Indication: PAIN
     Dosage: 5/325MG PER TABLET
     Dates: start: 20180523
  2. TRAZODONE [Concomitant]
     Active Substance: TRAZODONE HYDROCHLORIDE
     Dosage: 50 MG
  3. PENNSAID [Suspect]
     Active Substance: DICLOFENAC SODIUM
     Indication: PAIN
     Dosage: 2 PUMPS BID
     Route: 003
     Dates: start: 2017
  4. PANTOPRAZOLE [Concomitant]
     Active Substance: PANTOPRAZOLE
     Dosage: 40 MG
  5. BUPROPION. [Concomitant]
     Active Substance: BUPROPION
     Dosage: 100 MG
  6. LOSARTAN POTASSIUM/HYDROCHLOROTTHIAZIDE [Concomitant]
     Dosage: 100/12.5 MG
  7. MELATONIN [Concomitant]
     Active Substance: MELATONIN
     Dosage: 10 MG
  8. ALEVE [Concomitant]
     Active Substance: NAPROXEN SODIUM
  9. GABAPENTIN. [Concomitant]
     Active Substance: GABAPENTIN
     Dosage: 800 MG
  10. XTAMPZA ER [Suspect]
     Active Substance: OXYCODONE
     Indication: PAIN
     Dosage: 13.5MG BID EVERY 12H
     Route: 048
     Dates: start: 20180523
  11. ASPIRIN. [Concomitant]
     Active Substance: ASPIRIN

REACTIONS (9)
  - Gait disturbance [Unknown]
  - Dizziness [Unknown]
  - Dyspnoea [Unknown]
  - Off label use [Unknown]
  - Headache [Unknown]
  - Drug ineffective for unapproved indication [Unknown]
  - Feeling abnormal [Unknown]
  - Dyspepsia [Unknown]
  - Panic attack [Unknown]
